FAERS Safety Report 6703116-X (Version None)
Quarter: 2010Q2

REPORT INFORMATION
  Report Type: 
  Country: None (occurrence: None)
  Receive Date: 20100430
  Receipt Date: 20100419
  Transmission Date: 20101027
  Serious: Yes (Hospitalization)
  Sender: FDA-Public Use
  Company Number: DE-BIOGENIDEC-2010BI012654

PATIENT
  Age: 46 Year
  Sex: Female
  Weight: 105 kg

DRUGS (3)
  1. TYSABRI [Suspect]
     Indication: MULTIPLE SCLEROSIS
     Route: 042
     Dates: start: 20080728
  2. CITALOPRAM [Concomitant]
     Indication: DEPRESSION
     Dates: start: 20070530
  3. LEVOTHYROXINE SODIUM [Concomitant]

REACTIONS (1)
  - SOMATOFORM DISORDER [None]
